FAERS Safety Report 8138724-5 (Version None)
Quarter: 2012Q1

REPORT INFORMATION
  Report Type: 
  Country: None (occurrence: None)
  Receive Date: 20120215
  Receipt Date: 20120210
  Transmission Date: 20120608
  Serious: Yes (Other)
  Sender: FDA-Public Use
  Company Number: CA-GLAXOSMITHKLINE-A0931785A

PATIENT
  Sex: Male
  Weight: 72.7 kg

DRUGS (7)
  1. ROLAIDS [Concomitant]
  2. ALTACE [Concomitant]
     Dosage: 2.5MG PER DAY
     Route: 065
  3. PRILOSEC [Concomitant]
     Indication: GASTROOESOPHAGEAL REFLUX DISEASE
  4. SPIRIVA [Suspect]
     Indication: PRODUCT USED FOR UNKNOWN INDICATION
     Route: 065
  5. BLOOD PRESSURE MEDICATION [Concomitant]
  6. ADVAIR DISKUS 100/50 [Suspect]
     Indication: CHRONIC OBSTRUCTIVE PULMONARY DISEASE
     Dosage: 1PUFF PER DAY
     Route: 055
     Dates: start: 20090801
  7. SIERRASIL [Suspect]
     Indication: ARTHRALGIA
     Route: 065

REACTIONS (11)
  - MUSCULOSKELETAL STIFFNESS [None]
  - DRUG INEFFECTIVE [None]
  - DYSPNOEA [None]
  - MUSCULOSKELETAL PAIN [None]
  - INSOMNIA [None]
  - ARTHRITIS [None]
  - ARTHRALGIA [None]
  - MOVEMENT DISORDER [None]
  - NECK PAIN [None]
  - PAIN IN EXTREMITY [None]
  - PNEUMONIA [None]
